FAERS Safety Report 23205790 (Version 1)
Quarter: 2023Q4

REPORT INFORMATION
  Report Type: Spontaneous
  Country: CA (occurrence: CA)
  Receive Date: 20231120
  Receipt Date: 20231120
  Transmission Date: 20240110
  Serious: Yes (Other)
  Sender: FDA-Public Use
  Company Number: CA-TEVA-2022-CA-2821605

PATIENT

DRUGS (4)
  1. ESCITALOPRAM [Interacting]
     Active Substance: ESCITALOPRAM OXALATE
     Indication: Parkinsonism
     Route: 065
  2. ESCITALOPRAM [Interacting]
     Active Substance: ESCITALOPRAM OXALATE
     Indication: Parkinsonism
     Route: 065
  3. RASAGILINE [Interacting]
     Active Substance: RASAGILINE
     Indication: Parkinsonism
     Route: 065
  4. TRAZODONE [Interacting]
     Active Substance: TRAZODONE HYDROCHLORIDE
     Indication: Product used for unknown indication
     Route: 065

REACTIONS (4)
  - Inappropriate antidiuretic hormone secretion [Unknown]
  - Drug interaction [Unknown]
  - Serotonin syndrome [Unknown]
  - Product used for unknown indication [Unknown]
